FAERS Safety Report 5976124-4 (Version None)
Quarter: 2008Q4

REPORT INFORMATION
  Report Type: 
  Country: None (occurrence: None)
  Receive Date: 20081202
  Receipt Date: 20080509
  Transmission Date: 20090506
  Serious: Yes (Other)
  Sender: FDA-Public Use
  Company Number: US-AMGEN-QUU276572

PATIENT
  Sex: Female
  Weight: 65.8 kg

DRUGS (5)
  1. ENBREL [Suspect]
     Indication: RHEUMATOID ARTHRITIS
     Route: 058
     Dates: start: 20001019, end: 20080222
  2. CALCIUM [Concomitant]
  3. VITAMIN D [Concomitant]
     Dates: start: 20010109
  4. HYDROCHLOROTHIAZIDE [Concomitant]
     Dates: start: 20011030
  5. CELEBREX [Concomitant]
     Dates: start: 19990310

REACTIONS (3)
  - CEREBELLAR INFARCTION [None]
  - DIFFUSE LARGE B-CELL LYMPHOMA [None]
  - SINUSITIS [None]
